FAERS Safety Report 10149086 (Version 3)
Quarter: 2014Q2

REPORT INFORMATION
  Report Type: Report from Study
  Country: JP (occurrence: JP)
  Receive Date: 20140502
  Receipt Date: 20140609
  Transmission Date: 20141212
  Serious: Yes (Hospitalization)
  Sender: FDA-Public Use
  Company Number: JP-JNJFOC-20131201498

PATIENT
  Age: 77 Year
  Sex: Female
  Weight: 45 kg

DRUGS (5)
  1. STELARA [Suspect]
     Indication: PSORIASIS
     Route: 058
     Dates: start: 20130712
  2. STELARA [Suspect]
     Indication: PSORIASIS
     Route: 058
     Dates: start: 20130315, end: 20130315
  3. STELARA [Suspect]
     Indication: PSORIASIS
     Route: 058
     Dates: start: 20121214, end: 20121214
  4. STELARA [Suspect]
     Indication: PSORIASIS
     Route: 058
     Dates: start: 20121109, end: 20121109
  5. NEORAL [Concomitant]
     Indication: PSORIASIS
     Dosage: ORAL (50-100MG/DAY)
     Route: 048

REACTIONS (2)
  - Breast cancer [Recovered/Resolved]
  - C-reactive protein increased [Recovered/Resolved]
